FAERS Safety Report 10431205 (Version 1)
Quarter: 2014Q3

REPORT INFORMATION
  Report Type: Spontaneous
  Country: US (occurrence: None)
  Receive Date: 20140815
  Receipt Date: 20140815
  Transmission Date: 20150326
  Serious: No
  Sender: FDA-Public Use
  Company Number: A-NJ2014-099811

PATIENT
  Age: 70 Year
  Sex: Female

DRUGS (11)
  1. OPSUMIT [Suspect]
     Active Substance: MACITENTAN
     Indication: PULMONARY ARTERIAL HYPERTENSION
     Route: 048
     Dates: start: 20140522
  2. PREDNISONE. [Concomitant]
     Active Substance: PREDNISONE
  3. NEURONTIN [Concomitant]
     Active Substance: GABAPENTIN
  4. PREVACID [Concomitant]
     Active Substance: LANSOPRAZOLE
  5. MICARDIS [Concomitant]
     Active Substance: TELMISARTAN
  6. REVATIO (SILDENAFIL CITRATE) [Concomitant]
  7. FUROSEMIDE. [Concomitant]
     Active Substance: FUROSEMIDE
  8. ASPIRIN (ACETYLSALICYLIC ACID) [Concomitant]
     Active Substance: ASPIRIN
  9. TRAMADOL (TRAMADOL) [Concomitant]
     Active Substance: TRAMADOL
  10. LEVOTHYROXINE [Concomitant]
     Active Substance: LEVOTHYROXINE
  11. REGLAN [Concomitant]
     Active Substance: METOCLOPRAMIDE HYDROCHLORIDE

REACTIONS (2)
  - Nasal congestion [None]
  - Headache [None]

NARRATIVE: CASE EVENT DATE: 20140522
